FAERS Safety Report 19243209 (Version 1)
Quarter: 2021Q2

REPORT INFORMATION
  Report Type: Spontaneous
  Country: DE (occurrence: DE)
  Receive Date: 20210511
  Receipt Date: 20210511
  Transmission Date: 20210717
  Serious: Yes (Death, Hospitalization)
  Sender: FDA-Public Use
  Company Number: DE-TEVA-2021-DE-1909037

PATIENT
  Age: 85 Year
  Sex: Male

DRUGS (8)
  1. CLOTRIGALEN CREME [Concomitant]
     Dosage: 1 DOSAGE FORMS DAILY; 1?0?0?0
  2. OXYCODON [Suspect]
     Active Substance: OXYCODONE
     Dosage: 10 MILLIGRAM DAILY;  1?0?1?0
  3. RISPERIDON [Suspect]
     Active Substance: RISPERIDONE
     Dosage: 1 MILLIGRAM DAILY;  1?0?1?0
  4. HUMALOG [Suspect]
     Active Substance: INSULIN LISPRO
     Dosage: ACCORDING TO PLAN
  5. PARACETAMOL [Concomitant]
     Active Substance: ACETAMINOPHEN
     Dosage: 1000 MILLIGRAM DAILY;  1?0?1?0
  6. LEVEMIR [Suspect]
     Active Substance: INSULIN DETEMIR
     Dosage: 16 IU (INTERNATIONAL UNIT) DAILY; 0?0?1?0
  7. MELPERON [Concomitant]
     Active Substance: MELPERONE
     Dosage: 5 ML, 0?0?1?2, JUICE
  8. PANTOPRAZOL [Concomitant]
     Active Substance: PANTOPRAZOLE SODIUM
     Dosage: 40 MILLIGRAM DAILY;  1?0?0?0

REACTIONS (2)
  - Hypoglycaemia [Unknown]
  - Medication error [Unknown]

NARRATIVE: CASE EVENT DATE: 20210201
